FAERS Safety Report 10439546 (Version 2)
Quarter: 2014Q3

REPORT INFORMATION
  Report Type: Spontaneous
  Country: US (occurrence: US)
  Receive Date: 20140908
  Receipt Date: 20140908
  Transmission Date: 20150326
  Serious: No
  Sender: FDA-Public Use
  Company Number: US-BRISTOL-MYERS SQUIBB COMPANY-19963214

PATIENT
  Age: 10 Year
  Sex: Male
  Weight: 99.77 kg

DRUGS (4)
  1. MULTIVITAMIN [Concomitant]
     Active Substance: VITAMINS
  2. ABILIFY [Suspect]
     Active Substance: ARIPIPRAZOLE
     Indication: ASPERGER^S DISORDER
     Dosage: 7NOV11,1FEB14?5MG
     Route: 048
     Dates: start: 20111107
  3. ABILIFY [Suspect]
     Active Substance: ARIPIPRAZOLE
     Indication: AUTISM SPECTRUM DISORDER
     Dosage: 7NOV11,1FEB14?5MG
     Route: 048
     Dates: start: 20111107
  4. ERYTHROCIN [Concomitant]
     Active Substance: ERYTHROMYCIN LACTOBIONATE
     Indication: GASTROINTESTINAL MOTILITY DISORDER
     Route: 048

REACTIONS (6)
  - Hypothyroidism [Unknown]
  - Obesity [Unknown]
  - Glucose tolerance impaired [Unknown]
  - Tic [Recovered/Resolved]
  - Off label use [Unknown]
  - Increased appetite [Unknown]

NARRATIVE: CASE EVENT DATE: 20131230
